FAERS Safety Report 8049679-6 (Version None)
Quarter: 2012Q1

REPORT INFORMATION
  Report Type: 
  Country: None (occurrence: None)
  Receive Date: 20120117
  Receipt Date: 20120112
  Transmission Date: 20120608
  Serious: Yes (Death, Hospitalization)
  Sender: FDA-Public Use
  Company Number: US-GLAXOSMITHKLINE-A0933157A

PATIENT
  Age: 65 Year
  Sex: Female
  Weight: 56.8 kg

DRUGS (10)
  1. NEURONTIN [Concomitant]
  2. PEPCID [Concomitant]
  3. AMARYL [Concomitant]
  4. LIPITOR [Concomitant]
  5. AVANDIA [Suspect]
     Indication: TYPE 2 DIABETES MELLITUS
     Dosage: 8MG PER DAY
     Route: 048
     Dates: start: 20050308
  6. INSULIN [Concomitant]
  7. LOTREL [Concomitant]
  8. TAMOXIFEN CITRATE [Concomitant]
  9. DIGOXIN [Concomitant]
  10. FLOVENT [Concomitant]

REACTIONS (2)
  - DEATH [None]
  - CEREBROVASCULAR ACCIDENT [None]
